FAERS Safety Report 6965509-5 (Version None)
Quarter: 2010Q3

REPORT INFORMATION
  Report Type: 
  Country: None (occurrence: None)
  Receive Date: 20100901
  Receipt Date: 20100819
  Transmission Date: 20110219
  Serious: Yes (Other)
  Sender: FDA-Public Use
  Company Number: A-US2010-39192

PATIENT
  Age: 88 Year
  Sex: Female

DRUGS (3)
  1. TRACLEER [Suspect]
     Indication: PULMONARY ARTERIAL HYPERTENSION
     Dosage: ORAL
     Route: 048
     Dates: start: 20091028, end: 20100819
  2. REVATIO (SIILDENAFIL CITRATE) [Concomitant]
  3. COUMADIN [Concomitant]

REACTIONS (2)
  - HEART VALVE INCOMPETENCE [None]
  - NO THERAPEUTIC RESPONSE [None]
